FAERS Safety Report 9346277 (Version 1)
Quarter: 2013Q2

REPORT INFORMATION
  Report Type: Spontaneous
  Country: DK (occurrence: GB)
  Receive Date: 20130613
  Receipt Date: 20130613
  Transmission Date: 20140414
  Serious: Yes (Other)
  Sender: FDA-Public Use
  Company Number: GB-FRI-1000045852

PATIENT
  Age: 78 Year
  Sex: Female
  Weight: 75 kg

DRUGS (3)
  1. MEMANTINE [Suspect]
     Route: 048
     Dates: start: 20130524
  2. ELOCAN [Concomitant]
     Dates: start: 20130312, end: 20130409
  3. WARFARIN [Concomitant]
     Dates: start: 20130204, end: 20130515

REACTIONS (1)
  - Flushing [Unknown]
